FAERS Safety Report 21048090 (Version 1)
Quarter: 2022Q3

REPORT INFORMATION
  Report Type: Spontaneous
  Country: US (occurrence: None)
  Receive Date: 20220706
  Receipt Date: 20220706
  Transmission Date: 20221027
  Serious: Yes (Hospitalization)
  Sender: FDA-Public Use
  Company Number: None

PATIENT
  Age: 70 Year
  Sex: Male
  Weight: 81.5 kg

DRUGS (10)
  1. LEUCOVORIN CALCIUM [Suspect]
     Active Substance: LEUCOVORIN CALCIUM
     Dosage: FREQUENCY : EVERY OTHER WEEK;?
     Dates: start: 20190410
  2. FLUOROURACIL C-14 [Suspect]
     Active Substance: FLUOROURACIL C-14
     Dosage: FREQUENCY : EVERY OTHER WEEK;?
     Dates: start: 20190410
  3. FLUOROURACIL C-14 [Suspect]
     Active Substance: FLUOROURACIL C-14
     Dosage: FREQUENCY : EVERY OTHER WEEK;?
     Dates: start: 20190506
  4. FLUOROURACIL C-14 [Suspect]
     Active Substance: FLUOROURACIL C-14
     Dosage: FREQUENCY : EVERY OTHER WEEK;?
     Dates: start: 20190520
  5. OXALIPLATIN [Suspect]
     Active Substance: OXALIPLATIN
     Dosage: FREQUENCY : EVERY OTHER WEEK;?
     Route: 042
     Dates: start: 20190410
  6. OXALIPLATIN [Suspect]
     Active Substance: OXALIPLATIN
     Dosage: FREQUENCY : EVERY OTHER WEEK;?
     Route: 042
     Dates: start: 20190506
  7. OXALIPLATIN [Suspect]
     Active Substance: OXALIPLATIN
     Dosage: FREQUENCY : EVERY OTHER WEEK;?
     Dates: start: 20190520
  8. ABRAXANE [Suspect]
     Active Substance: PACLITAXEL
     Dosage: FREQUENCY : EVERY OTHER WEEK;?
     Dates: start: 20190410
  9. ABRAXANE [Suspect]
     Active Substance: PACLITAXEL
     Dosage: FREQUENCY : EVERY OTHER WEEK;?
     Dates: start: 20190506
  10. ABRAXANE [Suspect]
     Active Substance: PACLITAXEL
     Dosage: FREQUENCY : EVERY OTHER WEEK;?
     Dates: start: 20190520

REACTIONS (3)
  - Sepsis [None]
  - Staphylococcal infection [None]
  - Pulmonary embolism [None]

NARRATIVE: CASE EVENT DATE: 20190529
